FAERS Safety Report 4850190-1 (Version None)
Quarter: 2005Q4

REPORT INFORMATION
  Report Type: 
  Country: None (occurrence: None)
  Receive Date: 20051123
  Receipt Date: 20050919
  Transmission Date: 20060501
  Serious: No
  Sender: FDA-Public Use
  Company Number: 217894

PATIENT
  Age: 59 Year
  Sex: Female

DRUGS (2)
  1. RAPTIVA [Suspect]
     Indication: PSORIASIS
     Dosage: 0.75 ML, 1/WEEK,
     Dates: start: 20050701, end: 20050826
  2. LIPITOR [Concomitant]

REACTIONS (4)
  - BURSITIS [None]
  - INFECTION [None]
  - JOINT SWELLING [None]
  - OEDEMA PERIPHERAL [None]
